FAERS Safety Report 5661121-9 (Version None)
Quarter: 2008Q1

REPORT INFORMATION
  Report Type: 
  Country: None (occurrence: None)
  Receive Date: 20080305
  Receipt Date: 20080219
  Transmission Date: 20080703
  Serious: Yes (Other)
  Sender: FDA-Public Use
  Company Number: 2008004299

PATIENT
  Age: 34 Year
  Sex: Female
  Weight: 49.8957 kg

DRUGS (1)
  1. NEOSPORIN LIP THERAPY (ALLANTOIN, PRAMOXINE HYDROCHLORIDE) [Suspect]
     Indication: CHAPPED LIPS
     Dosage: UNSPECIFIED TWICE PER DAY, TOPICAL
     Route: 061
     Dates: start: 20080209, end: 20080216

REACTIONS (2)
  - BURNING SENSATION [None]
  - LIP DISCOLOURATION [None]
